FAERS Safety Report 5609817-9 (Version None)
Quarter: 2008Q1

REPORT INFORMATION
  Report Type: 
  Country: None (occurrence: None)
  Receive Date: 20080131
  Receipt Date: 20071119
  Transmission Date: 20080703
  Serious: No
  Sender: FDA-Public Use
  Company Number: US-BAYER-200713844BCC

PATIENT
  Age: 56 Year
  Sex: Female
  Weight: 91 kg

DRUGS (5)
  1. ALEVE GELCAP [Suspect]
     Indication: MUSCULOSKELETAL PAIN
     Dosage: AS USED: 220 MG  UNIT DOSE: 220 MG
     Route: 048
     Dates: start: 20071101
  2. HYDROCHLOROTHIAZIDE [Concomitant]
  3. CENTRUM [Concomitant]
  4. VITAMIN E [Concomitant]
  5. ASCORBIC ACID [Concomitant]

REACTIONS (3)
  - ARTHRALGIA [None]
  - BLOOD BLISTER [None]
  - MUSCULOSKELETAL PAIN [None]
